FAERS Safety Report 12010890 (Version 3)
Quarter: 2016Q2

REPORT INFORMATION
  Report Type: Report from Study
  Country: US (occurrence: US)
  Receive Date: 20160205
  Receipt Date: 20160504
  Transmission Date: 20160815
  Serious: Yes (Hospitalization)
  Sender: FDA-Public Use
  Company Number: US-BIOGEN-2015BI147513

PATIENT
  Age: 58 Year
  Sex: Female

DRUGS (1)
  1. TYSABRI [Suspect]
     Active Substance: NATALIZUMAB
     Indication: MULTIPLE SCLEROSIS
     Route: 042
     Dates: start: 20120501, end: 201601

REACTIONS (8)
  - Incision site infection [Recovered/Resolved]
  - Drug dose omission [Recovered/Resolved]
  - Wound [Not Recovered/Not Resolved]
  - Loss of control of legs [Recovered/Resolved]
  - Cellulitis [Unknown]
  - Tibia fracture [Recovered/Resolved]
  - Fall [Recovered/Resolved]
  - Femur fracture [Recovered/Resolved]

NARRATIVE: CASE EVENT DATE: 20151005
